FAERS Safety Report 6368929-5 (Version None)
Quarter: 2009Q3

REPORT INFORMATION
  Report Type: 
  Country: None (occurrence: None)
  Receive Date: 20090916
  Receipt Date: 20090908
  Transmission Date: 20100115
  Serious: Yes (Life-Threatening, Other)
  Sender: FDA-Public Use
  Company Number: ADR19542009

PATIENT
  Age: 37 Year
  Sex: Female

DRUGS (2)
  1. SERTRALINE HCL [Suspect]
     Indication: DEPRESSION
     Dosage: 50MG ORAL
     Route: 048
  2. VITAMINS (KETOLIFE) [Concomitant]

REACTIONS (2)
  - STILLBIRTH [None]
  - VAGINAL HAEMORRHAGE [None]
